FAERS Safety Report 12179538 (Version 1)
Quarter: 2016Q1

REPORT INFORMATION
  Report Type: Spontaneous
  Country: US (occurrence: US)
  Receive Date: 20160314
  Receipt Date: 20160314
  Transmission Date: 20160526
  Serious: Yes (Hospitalization)
  Sender: FDA-Public Use
  Company Number: US-SA-2016SA042850

PATIENT
  Sex: Male

DRUGS (6)
  1. SOLOSTAR [Concomitant]
     Active Substance: DEVICE
  2. SPIRIVA [Concomitant]
     Active Substance: TIOTROPIUM BROMIDE MONOHYDRATE
  3. HUMALOG [Concomitant]
     Active Substance: INSULIN LISPRO
  4. SYMBICORT [Concomitant]
     Active Substance: BUDESONIDE\FORMOTEROL FUMARATE DIHYDRATE
  5. LANTUS SOLOSTAR [Suspect]
     Active Substance: INSULIN GLARGINE
     Indication: TYPE 2 DIABETES MELLITUS
     Dosage: DOSE: 40-50U
     Route: 065
     Dates: start: 2001
  6. OXYGEN. [Concomitant]
     Active Substance: OXYGEN

REACTIONS (7)
  - Vascular graft [Unknown]
  - Visual impairment [Unknown]
  - Surgery [Unknown]
  - Pneumonia [Unknown]
  - Infection [Unknown]
  - Hypoacusis [Unknown]
  - Respiration abnormal [Unknown]

NARRATIVE: CASE EVENT DATE: 2001
